FAERS Safety Report 9669536 (Version 2)
Quarter: 2013Q4

REPORT INFORMATION
  Report Type: Report from Study
  Country: JP (occurrence: JP)
  Receive Date: 20131105
  Receipt Date: 20131218
  Transmission Date: 20140711
  Serious: Yes (Other)
  Sender: FDA-Public Use
  Company Number: JP-JNJFOC-20131019800

PATIENT
  Age: 42 Year
  Sex: Male
  Weight: 68 kg

DRUGS (8)
  1. SIMPONI [Suspect]
     Indication: RHEUMATOID ARTHRITIS
     Route: 058
     Dates: start: 20130426, end: 20130426
  2. SIMPONI [Suspect]
     Indication: RHEUMATOID ARTHRITIS
     Route: 058
     Dates: start: 20130524, end: 20130524
  3. SIMPONI [Suspect]
     Indication: RHEUMATOID ARTHRITIS
     Route: 058
     Dates: start: 20130620, end: 20130620
  4. SIMPONI [Suspect]
     Indication: RHEUMATOID ARTHRITIS
     Route: 058
     Dates: start: 20130719, end: 20130719
  5. RHEUMATREX [Suspect]
     Indication: RHEUMATOID ARTHRITIS
     Route: 048
     Dates: start: 20120609
  6. LOXONIN [Concomitant]
     Route: 065
  7. FOLIAMIN [Concomitant]
     Route: 065
  8. REBAMIPIDE [Concomitant]
     Route: 065

REACTIONS (1)
  - Interstitial lung disease [Recovering/Resolving]
